FAERS Safety Report 11023391 (Version 1)
Quarter: 2015Q2

REPORT INFORMATION
  Report Type: Spontaneous
  Country: US (occurrence: US)
  Receive Date: 20150413
  Receipt Date: 20150413
  Transmission Date: 20150821
  Serious: No
  Sender: FDA-Public Use
  Company Number: US-PFIZER INC-2015123425

PATIENT
  Age: 56 Year
  Sex: Female
  Weight: 101.59 kg

DRUGS (1)
  1. NICOTROL [Suspect]
     Active Substance: NICOTINE
     Dosage: UNK
     Dates: start: 201501

REACTIONS (3)
  - Breast enlargement [Unknown]
  - Waist circumference increased [Unknown]
  - Weight increased [Unknown]
